FAERS Safety Report 6420720 (Version 7)
Quarter: 2012Q4

REPORT INFORMATION
  Report Type: 
  Country: US (occurrence: US)
  Receive Date: 20070919
  Receipt Date: 20121217
  Transmission Date: 20130627
  Serious: Yes (Other)
  Sender: FDA-Public Use
  Company Number: US-ASTRAZENECA-2007UW13292

PATIENT
  Age: 50 Year
  Sex: Female

DRUGS (3)
  1. SEROQUEL [Suspect]
     Indication: BIPOLAR DISORDER
     Route: 048
     Dates: start: 2005
  2. SEROQUEL [Suspect]
     Indication: BIPOLAR DISORDER
     Route: 048
  3. ANOTHER MEDICATION [Suspect]
     Route: 065

REACTIONS (18)
  - Convulsion [Unknown]
  - Bipolar disorder [Unknown]
  - Rash generalised [Unknown]
  - Aphagia [Unknown]
  - Insomnia [Unknown]
  - Heart rate abnormal [Unknown]
  - Malaise [Unknown]
  - Headache [Unknown]
  - Mood swings [Unknown]
  - Nausea [Unknown]
  - Lung disorder [Unknown]
  - Withdrawal syndrome [Unknown]
  - Fear [Unknown]
  - Confusional state [Unknown]
  - Dyspnoea [Unknown]
  - Weight increased [Unknown]
  - Intentional drug misuse [Unknown]
  - Drug dose omission [Unknown]
